FAERS Safety Report 23606327 (Version 4)
Quarter: 2025Q1

REPORT INFORMATION
  Report Type: Spontaneous
  Country: US (occurrence: US)
  Receive Date: 20240307
  Receipt Date: 20250115
  Transmission Date: 20250408
  Serious: No
  Sender: SANOFI AVENTIS
  Company Number: US-SA-SAC20240301000455

PATIENT
  Age: 6 Year
  Sex: Female

DRUGS (3)
  1. DUPIXENT [Suspect]
     Active Substance: DUPILUMAB
     Indication: Eczema
     Route: 058
     Dates: start: 202311, end: 202311
  2. DUPIXENT [Suspect]
     Active Substance: DUPILUMAB
     Indication: Asthma
     Dosage: 300 MG, Q4W
     Route: 058
     Dates: start: 2023
  3. TRIAMCINOLONE [Concomitant]
     Active Substance: TRIAMCINOLONE

REACTIONS (14)
  - Eyelid skin dryness [Recovering/Resolving]
  - Dry skin [Recovering/Resolving]
  - Ear infection [Unknown]
  - Ear pain [Unknown]
  - Rhinorrhoea [Recovered/Resolved]
  - Dry skin [Recovering/Resolving]
  - Molluscum contagiosum [Unknown]
  - Dermatitis contact [Unknown]
  - Limb injury [Unknown]
  - Eczema [Unknown]
  - Oropharyngeal pain [Unknown]
  - Rash [Recovering/Resolving]
  - Asthma [Not Recovered/Not Resolved]
  - Cough [Not Recovered/Not Resolved]

NARRATIVE: CASE EVENT DATE: 20231101
